FAERS Safety Report 13869408 (Version 1)
Quarter: 2017Q3

REPORT INFORMATION
  Report Type: Spontaneous
  Country: FR (occurrence: FR)
  Receive Date: 20170815
  Receipt Date: 20170815
  Transmission Date: 20171127
  Serious: Yes (Hospitalization, Other)
  Sender: FDA-Public Use
  Company Number: FR-PFIZER INC-2017348065

PATIENT
  Age: 6 Year
  Sex: Male

DRUGS (9)
  1. ATARAX [Suspect]
     Active Substance: HYDROXYZINE HYDROCHLORIDE
     Indication: ANXIETY
     Dosage: UNK UNK, SINGLE
     Route: 048
     Dates: start: 20170721, end: 20170721
  2. ATRACURIUM BESILATE [Suspect]
     Active Substance: ATRACURIUM BESYLATE
     Indication: ANAESTHESIA
     Dosage: 10 MG, SINGLE
     Route: 042
     Dates: start: 20170722, end: 20170722
  3. PARACETAMOL [Suspect]
     Active Substance: ACETAMINOPHEN
     Indication: PAIN
     Dosage: 300 MG, 4X/DAY
     Route: 042
     Dates: start: 20170715, end: 20170725
  4. GENTAMICINE PANPHARMA [Suspect]
     Active Substance: GENTAMICIN
     Indication: GASTROINTESTINAL SURGERY
     Dosage: 100 MG, 1X/DAY
     Route: 042
     Dates: start: 20170722
  5. PROPOFOL LIPURO [Suspect]
     Active Substance: PROPOFOL
     Indication: ANAESTHESIA
     Dosage: 150 MG, SINGLE
     Route: 042
     Dates: start: 20170722, end: 20170722
  6. SUFENTANIL MYLAN [Suspect]
     Active Substance: SUFENTANIL
     Indication: ANAESTHESIA
     Dosage: 8 UG, SINGLE
     Dates: start: 20170722, end: 20170722
  7. NEFOPAM MEDISOL [Suspect]
     Active Substance: NEFOPAM HYDROCHLORIDE
     Indication: PAIN
     Dosage: 10 MG, DAILY
     Route: 042
     Dates: start: 20170722
  8. NALBUPHINE MYLAN [Suspect]
     Active Substance: NALBUPHINE
     Indication: PAIN
     Dosage: 4 MG 4 TO 6 TIMES DAILY
     Route: 042
     Dates: start: 20170722
  9. AMOXICILLINE/ACIDE CLAVULANIQ. SANDOZ [Suspect]
     Active Substance: AMOXICILLIN\CLAVULANIC ACID
     Indication: SOFT TISSUE INFECTION
     Dosage: 700 MG, 3X/DAY
     Route: 042
     Dates: start: 20170722, end: 20170725

REACTIONS (3)
  - Rash maculo-papular [Not Recovered/Not Resolved]
  - Pyrexia [Unknown]
  - Lymphadenopathy [Unknown]

NARRATIVE: CASE EVENT DATE: 20170724
